FAERS Safety Report 12388363 (Version 1)
Quarter: 2016Q2

REPORT INFORMATION
  Report Type: Spontaneous
  Country: None (occurrence: None)
  Receive Date: 20160519
  Receipt Date: 20160519
  Transmission Date: 20160815
  Serious: Yes (Hospitalization)
  Sender: FDA-Public Use
  Company Number: None

PATIENT
  Age: 23 Year
  Sex: Male
  Weight: 113.4 kg

DRUGS (4)
  1. STRATTERA [Suspect]
     Active Substance: ATOMOXETINE HYDROCHLORIDE
     Indication: ATTENTION DEFICIT/HYPERACTIVITY DISORDER
     Dosage: 30 CAPSULE(S) ONCE A DAY TAKEN BY MOUTH
     Route: 048
     Dates: start: 20160503, end: 20160511
  2. VITAMIN B COMPLEX [Concomitant]
     Active Substance: CYANOCOBALAMIN\DEXPANTHENOL\NIACINAMIDE\PYRIDOXINE HYDROCHLORIDE\RIBOFLAVIN 5^-PHOSPHATE SODIUM\THIAMINE HYDROCHLORIDE\VITAMIN B COMPLEX
  3. DAILY VITAMIN [Concomitant]
     Active Substance: VITAMINS
  4. ALLEGRA [Concomitant]
     Active Substance: FEXOFENADINE HYDROCHLORIDE

REACTIONS (10)
  - Testicular swelling [None]
  - Suicidal ideation [None]
  - Depression [None]
  - Influenza like illness [None]
  - Tremor [None]
  - Panic attack [None]
  - Crying [None]
  - Dysuria [None]
  - Anxiety [None]
  - Pyrexia [None]

NARRATIVE: CASE EVENT DATE: 20160515
